FAERS Safety Report 14934678 (Version 1)
Quarter: 2018Q2

REPORT INFORMATION
  Report Type: Spontaneous
  Country: US (occurrence: US)
  Receive Date: 20180505
  Receipt Date: 20180505
  Transmission Date: 20180711
  Serious: Yes (Other)
  Sender: FDA-Public Use
  Company Number: None

PATIENT
  Sex: Female

DRUGS (1)
  1. RESPIRIDONE [Suspect]
     Active Substance: RISPERIDONE
     Indication: BIPOLAR I DISORDER

REACTIONS (3)
  - Swollen tongue [None]
  - Lethargy [None]
  - Movement disorder [None]

NARRATIVE: CASE EVENT DATE: 20180501
